FAERS Safety Report 9127113 (Version 1)
Quarter: 2013Q1

REPORT INFORMATION
  Report Type: Spontaneous
  Country: US (occurrence: US)
  Receive Date: 20130122
  Receipt Date: 20130122
  Transmission Date: 20140127
  Serious: No
  Sender: FDA-Public Use
  Company Number: US-MYLANLABS-2012S1014656

PATIENT
  Age: 55 Year
  Sex: Female

DRUGS (16)
  1. LETROZOLE [Suspect]
     Indication: ENDOMETRIAL CANCER STAGE IV
     Route: 048
     Dates: start: 201205
  2. DEXAMETHASONE [Suspect]
     Route: 048
     Dates: start: 201112
  3. TAXOL W/CARBOPLATIN [Concomitant]
     Indication: NEOPLASM MALIGNANT
     Dosage: CHEMOTHERAPY
     Route: 042
  4. FLUOXETINE [Concomitant]
     Route: 048
  5. GABAPENTIN [Concomitant]
     Route: 048
  6. GLIPIZIDE [Concomitant]
     Route: 048
  7. LISINOPRIL [Concomitant]
     Route: 048
  8. MEGACE [Concomitant]
     Route: 048
  9. METFORMIN [Concomitant]
     Indication: DIABETES MELLITUS
     Route: 048
  10. PRAVASTATIN [Concomitant]
     Route: 048
  11. WARFARIN [Concomitant]
     Route: 048
  12. PRILOSEC [Concomitant]
     Route: 048
  13. ONDANSETRON [Concomitant]
     Indication: NAUSEA
     Dosage: NAUSEA WITH CHEMOTHERAPY
     Route: 048
     Dates: start: 2012
  14. HUMULIN [Concomitant]
     Indication: DIABETES MELLITUS
     Dosage: 70/30
     Route: 058
  15. HUMULIN [Concomitant]
     Indication: DIABETES MELLITUS
     Dosage: 70/30
     Route: 058
  16. HUMULIN R [Concomitant]
     Indication: DIABETES MELLITUS
     Dosage: 4-10 IU, SLIDING SCALE
     Route: 058
     Dates: start: 2012

REACTIONS (1)
  - Blood glucose increased [Not Recovered/Not Resolved]
